FAERS Safety Report 7877484-X (Version None)
Quarter: 2011Q4

REPORT INFORMATION
  Report Type: 
  Country: None (occurrence: None)
  Receive Date: 20111031
  Receipt Date: 20111025
  Transmission Date: 20120403
  Serious: Yes (Death, Other)
  Sender: FDA-Public Use
  Company Number: JP-PFIZER INC-2011247280

PATIENT
  Age: 82 Year
  Sex: Male
  Weight: 48.9 kg

DRUGS (10)
  1. ACETAMINOPHEN [Concomitant]
     Indication: LUMBAR SPINAL STENOSIS
     Dosage: 1200 MG, 3X/DAY
     Route: 048
     Dates: start: 20110918, end: 20111013
  2. RISUMIC [Concomitant]
     Indication: PROCEDURAL HYPOTENSION
     Dosage: 20 MG, 1X/DAY
     Route: 048
     Dates: start: 20110923, end: 20111013
  3. CARVEDILOL [Suspect]
     Indication: VENTRICULAR EXTRASYSTOLES
     Dosage: 0.625 MG, 1X/DAY
     Route: 048
     Dates: start: 20111006, end: 20111012
  4. LEVOTHYROXINE SODIUM [Concomitant]
     Dosage: 50 UG, 1X/DAY
     Route: 048
     Dates: start: 20111011, end: 20111013
  5. MEXITIL [Concomitant]
     Indication: VENTRICULAR EXTRASYSTOLES
     Dosage: 150 MG, 3X/DAY
     Route: 048
     Dates: start: 20110926, end: 20111004
  6. LEVOTHYROXINE SODIUM [Concomitant]
     Indication: HYPOTHYROIDISM
     Dosage: 25 UG, 1X/DAY
     Route: 048
     Dates: start: 20110921, end: 20111010
  7. LYRICA [Suspect]
     Indication: LUMBAR SPINAL STENOSIS
     Dosage: 25 MG, 1X/DAY
     Route: 048
     Dates: start: 20110917, end: 20111012
  8. OPALMON [Concomitant]
     Indication: LUMBAR SPINAL STENOSIS
     Dosage: 15 UG, 3X/DAY
     Route: 048
     Dates: start: 20110918, end: 20111013
  9. METHYCOOL [Concomitant]
     Indication: DIABETIC NEUROPATHY
     Dosage: 1500 UG, 3X/DAY
     Route: 048
     Dates: start: 20110918, end: 20111013
  10. LANSOPRAZOLE [Concomitant]
     Indication: GASTROOESOPHAGEAL REFLUX DISEASE
     Dosage: 15 MG, 1X/DAY
     Route: 048
     Dates: start: 20110918, end: 20111013

REACTIONS (8)
  - RESPIRATORY FAILURE [None]
  - DIZZINESS [None]
  - VENTRICULAR EXTRASYSTOLES [None]
  - RENAL FAILURE ACUTE [None]
  - CARDIAC FAILURE ACUTE [None]
  - SINUS BRADYCARDIA [None]
  - CARDIAC ARREST [None]
  - SOMNOLENCE [None]
